FAERS Safety Report 8471630-5 (Version None)
Quarter: 2012Q2

REPORT INFORMATION
  Report Type: 
  Country: None (occurrence: None)
  Receive Date: 20120627
  Receipt Date: 20120620
  Transmission Date: 20120825
  Serious: Yes (Other)
  Sender: FDA-Public Use
  Company Number: GB-ROCHE-1072814

PATIENT
  Sex: Female

DRUGS (2)
  1. MABTHERA [Suspect]
     Indication: PRODUCT USED FOR UNKNOWN INDICATION
     Dosage: LAST DOSE IN FEB 2011
     Dates: start: 20090522
  2. METHOTREXATE [Concomitant]
     Dates: start: 20120415

REACTIONS (1)
  - PANCREATIC CARCINOMA NON-RESECTABLE [None]
